FAERS Safety Report 7165588 (Version 4)
Quarter: 2014Q1

REPORT INFORMATION
  Report Type: Report from Study
  Country: JP (occurrence: JP)
  Receive Date: 20091103
  Receipt Date: 20140131
  Transmission Date: 20141002
  Serious: Yes (Death)
  Sender: FDA-Public Use
  Company Number: JP-PFIZER INC-2009288836

PATIENT
  Age: 56 Year
  Sex: Male

DRUGS (16)
  1. SUNITINIB MALATE [Suspect]
     Indication: RENAL CELL CARCINOMA
     Dosage: 50 MG, 1X/DAY, 1ST CYCLE
     Route: 048
     Dates: start: 20081126
  2. SUNITINIB MALATE [Suspect]
     Dosage: 37.5 MG, 1X/DAY, 1ST CYCLE
     Route: 048
     Dates: start: 20081209
  3. SUNITINIB MALATE [Suspect]
     Dosage: 37.5 MG, 1X/DAY, 2ND CYCLE
     Route: 048
     Dates: start: 20090106, end: 20090202
  4. SUNITINIB MALATE [Suspect]
     Dosage: 37.5 MG, 1X/DAY, 3RD CYCLE
     Route: 048
     Dates: start: 20090217, end: 20090317
  5. SUNITINIB MALATE [Suspect]
     Dosage: 37.5 MG, 1X/DAY, 4TH CYCLE
     Route: 048
     Dates: start: 20090330, end: 20090427
  6. SUNITINIB MALATE [Suspect]
     Dosage: 37.5 MG, 1X/DAY, 5TH CYCLE
     Route: 048
     Dates: start: 20090511, end: 20090608
  7. SUNITINIB MALATE [Suspect]
     Dosage: 37.5 MG, 1X/DAY, 6TH CYCLE
     Route: 048
     Dates: start: 20090622, end: 20090717
  8. SUNITINIB MALATE [Suspect]
     Dosage: 37.5 MG, 1X/DAY, 7TH CYCLE
     Route: 048
     Dates: start: 20090804, end: 20090831
  9. SUNITINIB MALATE [Suspect]
     Dosage: 37.5 MG, 1X/DAY, 8TH CYCLE
     Route: 048
     Dates: start: 20090918, end: 20090929
  10. SUNITINIB MALATE [Suspect]
     Dosage: 25 MG, 1X/DAY, 8TH CYCLE
     Route: 048
     Dates: start: 20090930, end: 20091013
  11. GLYCYRON [Concomitant]
     Route: 048
     Dates: start: 20081130
  12. NAIXAN [Concomitant]
     Route: 048
     Dates: start: 20081130
  13. THYRADIN S [Concomitant]
     Route: 048
     Dates: start: 20081004
  14. LASIX [Concomitant]
     Route: 048
     Dates: start: 20090105
  15. OMEPRAL [Concomitant]
     Route: 048
     Dates: start: 20090120
  16. UREPEARL [Concomitant]
     Route: 062
     Dates: start: 20090105

REACTIONS (1)
  - Hepatic function abnormal [Fatal]
